FAERS Safety Report 23387799 (Version 1)
Quarter: 2024Q1

REPORT INFORMATION
  Report Type: Spontaneous
  Country: US (occurrence: US)
  Receive Date: 20240110
  Receipt Date: 20240110
  Transmission Date: 20240410
  Serious: Yes (Other)
  Sender: FDA-Public Use
  Company Number: US-AstraZeneca-CH-00539257A

PATIENT
  Age: 50 Year
  Sex: Female
  Weight: 208.65 kg

DRUGS (1)
  1. ULTOMIRIS [Suspect]
     Active Substance: RAVULIZUMAB-CWVZ
     Indication: Myasthenia gravis
     Dosage: 3600 MILLIGRAM, EVERY 8 WEEKS
     Route: 041
     Dates: start: 20230823

REACTIONS (2)
  - Femur fracture [Recovering/Resolving]
  - Joint injury [Unknown]

NARRATIVE: CASE EVENT DATE: 20231227
